FAERS Safety Report 5401720-2 (Version None)
Quarter: 2007Q3

REPORT INFORMATION
  Report Type: 
  Country: None (occurrence: None)
  Receive Date: 20070731
  Receipt Date: 20070719
  Transmission Date: 20080115
  Serious: Yes (Other)
  Sender: FDA-Public Use
  Company Number: US-ELI_LILLY_AND_COMPANY-US200707005038

PATIENT
  Sex: Male

DRUGS (1)
  1. STRATTERA [Suspect]
     Route: 048

REACTIONS (2)
  - POST PROCEDURAL HAEMORRHAGE [None]
  - TONSILLECTOMY [None]
